FAERS Safety Report 19995675 (Version 1)
Quarter: 2021Q4

REPORT INFORMATION
  Report Type: Spontaneous
  Country: US (occurrence: US)
  Receive Date: 20211026
  Receipt Date: 20211026
  Transmission Date: 20220303
  Serious: Yes (Hospitalization, Other)
  Sender: FDA-Public Use
  Company Number: None

PATIENT
  Age: 33 Year
  Sex: Male
  Weight: 112.95 kg

DRUGS (1)
  1. REGEN-COV [Suspect]
     Active Substance: CASIRIVIMAB\IMDEVIMAB
     Indication: COVID-19
     Dosage: ?          OTHER FREQUENCY:ONCE;
     Route: 041
     Dates: start: 20211020, end: 20211020

REACTIONS (8)
  - Dyspnoea [None]
  - Tachypnoea [None]
  - Blood pressure increased [None]
  - Heart rate increased [None]
  - Oxygen saturation decreased [None]
  - Lymphopenia [None]
  - Sinus tachycardia [None]
  - Pneumonia viral [None]

NARRATIVE: CASE EVENT DATE: 20211020
